FAERS Safety Report 20833077 (Version 1)
Quarter: 2022Q2

REPORT INFORMATION
  Report Type: Spontaneous
  Country: US (occurrence: None)
  Receive Date: 20220514
  Receipt Date: 20220514
  Transmission Date: 20220721
  Serious: No
  Sender: FDA-Public Use
  Company Number: None

PATIENT
  Age: 33 Year
  Sex: Male
  Weight: 144.1 kg

DRUGS (6)
  1. CYTARABINE [Suspect]
     Active Substance: CYTARABINE
     Dates: end: 20210901
  2. SPRYCEL [Suspect]
     Active Substance: DASATINIB
     Dates: end: 20210901
  3. DEXAMETHASONE [Suspect]
     Active Substance: DEXAMETHASONE
     Dates: end: 20210901
  4. METHOTREXATE [Suspect]
     Active Substance: METHOTREXATE
     Dates: end: 20210901
  5. PREDNISONE [Suspect]
     Active Substance: PREDNISONE
     Dates: end: 20210316
  6. VINCRISTINE SULFATE [Suspect]
     Active Substance: VINCRISTINE SULFATE
     Dates: end: 20210903

REACTIONS (7)
  - Headache [None]
  - Petechiae [None]
  - Pneumonia [None]
  - Haemoglobin decreased [None]
  - Mucosal inflammation [None]
  - White blood cell count decreased [None]
  - Platelet count decreased [None]

NARRATIVE: CASE EVENT DATE: 20210910
